FAERS Safety Report 23868420 (Version 1)
Quarter: 2024Q2

REPORT INFORMATION
  Report Type: Spontaneous
  Country: IN (occurrence: IN)
  Receive Date: 20240517
  Receipt Date: 20240517
  Transmission Date: 20240716
  Serious: Yes (Other)
  Sender: FDA-Public Use
  Company Number: IN-TORRENT-00003534

PATIENT
  Age: 4 Year
  Sex: Male
  Weight: 9 kg

DRUGS (9)
  1. LINEZOLID [Suspect]
     Active Substance: LINEZOLID
     Indication: Meningitis tuberculous
     Dosage: UNKNOWN
     Route: 065
  2. MOXIFLOXACIN [Suspect]
     Active Substance: MOXIFLOXACIN
     Indication: Meningitis tuberculous
     Dosage: UNKNOWN
     Route: 065
     Dates: end: 202112
  3. PREDNISOLONE [Suspect]
     Active Substance: PREDNISOLONE
     Indication: Meningitis tuberculous
     Dosage: 2 MG/KG/DAY
     Route: 048
  4. AMINOSALICYLATE SODIUM [Suspect]
     Active Substance: AMINOSALICYLATE SODIUM
     Indication: Meningitis tuberculous
     Dosage: UNKNOWN
     Route: 065
  5. BEDAQUILINE [Suspect]
     Active Substance: BEDAQUILINE
     Indication: Meningitis tuberculous
     Dosage: UNKNOWN
     Route: 065
  6. CLOFAZIMINE [Suspect]
     Active Substance: CLOFAZIMINE
     Indication: Meningitis tuberculous
     Dosage: UNKNOWN
     Route: 065
  7. CYCLOSERINE [Suspect]
     Active Substance: CYCLOSERINE
     Indication: Meningitis tuberculous
     Dosage: UNKNOWN
     Route: 065
  8. DELAMANID [Suspect]
     Active Substance: DELAMANID
     Indication: Meningitis tuberculous
     Dosage: UNKNOWN
     Route: 065
  9. KANAMYCIN [Suspect]
     Active Substance: KANAMYCIN A SULFATE
     Indication: Meningitis tuberculous
     Dosage: UNKNOWN
     Route: 065
     Dates: end: 202112

REACTIONS (4)
  - Treatment failure [Unknown]
  - Tuberculosis [Unknown]
  - Tuberculosis gastrointestinal [Unknown]
  - Disease recurrence [Unknown]
